FAERS Safety Report 15331807 (Version 3)
Quarter: 2021Q1

REPORT INFORMATION
  Report Type: Report from Study
  Country: US (occurrence: US)
  Receive Date: 20180829
  Receipt Date: 20210122
  Transmission Date: 20210419
  Serious: Yes (Death, Other)
  Sender: FDA-Public Use
  Company Number: PHHY2018US083199

PATIENT
  Sex: Female

DRUGS (1)
  1. AFINITOR [Suspect]
     Active Substance: EVEROLIMUS
     Indication: PRODUCT USED FOR UNKNOWN INDICATION
     Dosage: 10 MG, QD
     Route: 048

REACTIONS (2)
  - Death [Fatal]
  - Pain in extremity [Unknown]
